FAERS Safety Report 18734093 (Version 1)
Quarter: 2021Q1

REPORT INFORMATION
  Report Type: Spontaneous
  Country: DE (occurrence: DE)
  Receive Date: 20210113
  Receipt Date: 20210113
  Transmission Date: 20210428
  Serious: Yes (Hospitalization, Other)
  Sender: FDA-Public Use
  Company Number: DE-009507513-2101DEU004339

PATIENT
  Age: 29 Year
  Sex: Female

DRUGS (2)
  1. OVALEAP [Suspect]
     Active Substance: FOLLITROPIN ALFA
     Indication: ASSISTED REPRODUCTIVE TECHNOLOGY
     Dosage: 100 I.U. FROM 3RD-8TH DAY OF THE CYCLE 150 I.U. ON 9TH-10TH DAY OF THE CYCLE
  2. ORGALUTRAN [Suspect]
     Active Substance: GANIRELIX ACETATE
     Indication: ASSISTED REPRODUCTIVE TECHNOLOGY
     Dosage: 7TH-8TH DAY OF THE CYCLE

REACTIONS (3)
  - Abdominal pain [Recovered/Resolved]
  - Dyspnoea exertional [Recovered/Resolved]
  - Ovarian hyperstimulation syndrome [Recovered/Resolved]

NARRATIVE: CASE EVENT DATE: 202012
